FAERS Safety Report 19142346 (Version 2)
Quarter: 2021Q2

REPORT INFORMATION
  Report Type: Report from Study
  Country: BR (occurrence: BR)
  Receive Date: 20210415
  Receipt Date: 20210430
  Transmission Date: 20210717
  Serious: Yes (Hospitalization, Other)
  Sender: FDA-Public Use
  Company Number: NVSC2021BR081824

PATIENT
  Age: 67 Year
  Sex: Female
  Weight: 58.3 kg

DRUGS (8)
  1. KISQALI [Suspect]
     Active Substance: RIBOCICLIB
     Indication: PRODUCT USED FOR UNKNOWN INDICATION
     Dosage: UNK
     Route: 065
  2. XARELTO [Concomitant]
     Active Substance: RIVAROXABAN
     Indication: ANTICOAGULANT THERAPY
     Dosage: 30 MG, QD
     Route: 048
     Dates: start: 20210319, end: 20210326
  3. PANTOPRAZOLE [Suspect]
     Active Substance: PANTOPRAZOLE
     Indication: PROPHYLAXIS AGAINST GASTROINTESTINAL ULCER
     Dosage: 40 MG, QD
     Route: 048
     Dates: end: 20210325
  4. BROMOPRIDE [Concomitant]
     Active Substance: BROMOPRIDE
     Indication: GASTROINTESTINAL MOTILITY DISORDER
     Dosage: 10 MG, BID
     Route: 065
     Dates: start: 20210319, end: 20210325
  5. KISQALI [Suspect]
     Active Substance: RIBOCICLIB
     Dosage: UNK
     Route: 065
     Dates: start: 20210314
  6. BUSCOPAN [Concomitant]
     Active Substance: BUTYLSCOPOLAMINE BROMIDE
     Indication: ANALGESIC THERAPY
     Dosage: 1 DF, Q8H
     Route: 065
     Dates: start: 20210319, end: 20210325
  7. DECADRON [Concomitant]
     Active Substance: DEXAMETHASONE
     Indication: ANTIINFLAMMATORY THERAPY
     Dosage: 4 MG, QD
     Route: 048
     Dates: start: 20210319, end: 20210325
  8. NOVALGINA [Concomitant]
     Active Substance: METAMIZOLE SODIUM
     Indication: ANALGESIC THERAPY
     Dosage: 1 G, Q8H
     Route: 065
     Dates: start: 20210319, end: 20210326

REACTIONS (20)
  - Gastritis [Recovered/Resolved]
  - Vomiting [Recovered/Resolved]
  - Neoplasm [Unknown]
  - Inflammation [Unknown]
  - Feeling abnormal [Unknown]
  - Vomiting [Recovering/Resolving]
  - Malaise [Unknown]
  - Wrong technique in product usage process [Unknown]
  - Intestinal obstruction [Recovered/Resolved]
  - Pain [Recovered/Resolved]
  - Secretion discharge [Unknown]
  - Volvulus [Unknown]
  - Hydronephrosis [Unknown]
  - Blood pressure decreased [Unknown]
  - Eye disorder [Unknown]
  - Metastases to peritoneum [Unknown]
  - Gastrointestinal disorder [Recovering/Resolving]
  - Post procedural complication [Unknown]
  - Swelling [Unknown]
  - Abdominal pain [Unknown]

NARRATIVE: CASE EVENT DATE: 20210219
